FAERS Safety Report 23429631 (Version 3)
Quarter: 2024Q1

REPORT INFORMATION
  Report Type: Spontaneous
  Country: DE (occurrence: DE)
  Receive Date: 20240122
  Receipt Date: 20240202
  Transmission Date: 20240410
  Serious: Yes (Other)
  Sender: FDA-Public Use
  Company Number: None

PATIENT
  Age: 8 Day
  Weight: 4.3 kg

DRUGS (1)
  1. CYTOTEC [Suspect]
     Active Substance: MISOPROSTOL
     Dosage: TWO OR FOURFOLD INCREASED DOSE / 50 AND 10009:40: 1/4 TSP. - 50 MCG 16:20: 1/4 TSP. - 50 MCG
     Route: 064
     Dates: start: 20200212, end: 20200212

REACTIONS (18)
  - Motor developmental delay [Unknown]
  - Kinematic imbalances due to suboccipital strain [Unknown]
  - Developmental hip dysplasia [Unknown]
  - Birth trauma [Unknown]
  - Conductive deafness [Unknown]
  - Foetal exposure during pregnancy [Unknown]
  - Hypotonia neonatal [Unknown]
  - Developmental coordination disorder [Unknown]
  - Motor dysfunction [Unknown]
  - Infantile vomiting [Unknown]
  - Oxygen saturation abnormal [Unknown]
  - Crying [Unknown]
  - Otitis media [Unknown]
  - Movement disorder [Unknown]
  - Apathy [Unknown]
  - Insomnia [Unknown]
  - Middle insomnia [Unknown]
  - Adenoidal disorder [Unknown]

NARRATIVE: CASE EVENT DATE: 20200221
